FAERS Safety Report 18195486 (Version 1)
Quarter: 2020Q3

REPORT INFORMATION
  Report Type: Report from Study
  Country: US (occurrence: US)
  Receive Date: 20200825
  Receipt Date: 20200825
  Transmission Date: 20201103
  Serious: Yes (Hospitalization)
  Sender: FDA-Public Use
  Company Number: US-ACTELION-A-NJ2018-178283

PATIENT
  Sex: Female
  Weight: 83.45 kg

DRUGS (3)
  1. ELIQUIS [Concomitant]
     Active Substance: APIXABAN
  2. ADEMPAS [Concomitant]
     Active Substance: RIOCIGUAT
  3. OPSUMIT [Suspect]
     Active Substance: MACITENTAN
     Indication: PULMONARY ARTERIAL HYPERTENSION
     Dosage: 10 MG, QD
     Route: 048
     Dates: start: 20181204

REACTIONS (8)
  - Muscle spasms [Unknown]
  - Hospitalisation [Unknown]
  - Dizziness [Unknown]
  - Headache [Unknown]
  - Tooth extraction [Unknown]
  - Nausea [Unknown]
  - Swelling [Unknown]
  - Chest pain [Unknown]
